FAERS Safety Report 5888273-X (Version None)
Quarter: 2008Q3

REPORT INFORMATION
  Report Type: 
  Country: None (occurrence: None)
  Receive Date: 20080916
  Receipt Date: 20080901
  Transmission Date: 20090109
  Serious: Yes (Other)
  Sender: FDA-Public Use
  Company Number: 1000000942

PATIENT
  Age: 3 Year

DRUGS (2)
  1. ESCITALOPRAM OXALATE [Suspect]
     Dosage: (50 MG, ONCE), ORAL
     Route: 048
     Dates: start: 20060101, end: 20060101
  2. PIPAMPERON [Suspect]
     Dosage: (200 MG, ONCE), ORAL
     Route: 048
     Dates: start: 20060101, end: 20060101

REACTIONS (6)
  - ACCIDENTAL EXPOSURE [None]
  - DYSARTHRIA [None]
  - ELECTROCARDIOGRAM QT PROLONGED [None]
  - MUSCLE SPASMS [None]
  - SOMNOLENCE [None]
  - TACHYCARDIA [None]
